FAERS Safety Report 4992263-9 (Version None)
Quarter: 2006Q2

REPORT INFORMATION
  Report Type: 
  Country: None (occurrence: None)
  Receive Date: 20060502
  Receipt Date: 20060417
  Transmission Date: 20061013
  Serious: No
  Sender: FDA-Public Use
  Company Number: T200600255

PATIENT
  Age: 53 Year
  Sex: Male

DRUGS (1)
  1. MORPHINE [Suspect]
     Dosage: 15 ML, ORAL
     Route: 048
     Dates: start: 20060330

REACTIONS (1)
  - FOREIGN BODY TRAUMA [None]
